FAERS Safety Report 5648442-0 (Version None)
Quarter: 2008Q1

REPORT INFORMATION
  Report Type: 
  Country: None (occurrence: None)
  Receive Date: 20080304
  Receipt Date: 20080225
  Transmission Date: 20080703
  Serious: Yes (Hospitalization)
  Sender: FDA-Public Use
  Company Number: PHHY2008JP01133

PATIENT
  Age: 78 Year
  Sex: Male

DRUGS (8)
  1. CARBIDOPA AND LEVODOPA [Concomitant]
     Dosage: 300 MG
     Route: 048
  2. PANTOSIN [Concomitant]
     Dosage: 1.5 G
     Route: 048
  3. KAMAG G [Concomitant]
     Dosage: 1.5 G
     Route: 048
  4. TAMSULOSIN HCL [Concomitant]
     Dosage: 0.2 MG
     Route: 048
  5. UBRETID [Concomitant]
     Dosage: 5 MG
     Route: 048
  6. FAMOTIDINE [Concomitant]
     Dosage: 20 MG
     Route: 048
  7. PREDONINE [Concomitant]
     Indication: SKIN DISORDER
     Dosage: 8 MG
     Route: 048
  8. COMTAN [Suspect]
     Indication: PARKINSON'S DISEASE
     Dosage: 100 MG, QD
     Route: 048
     Dates: start: 20071207, end: 20071211

REACTIONS (12)
  - B-LYMPHOCYTE COUNT DECREASED [None]
  - CAROTID ARTERY STENOSIS [None]
  - CEREBRAL INFARCTION [None]
  - GAMMA-GLUTAMYLTRANSFERASE INCREASED [None]
  - HAEMATOCRIT DECREASED [None]
  - HAEMOGLOBIN DECREASED [None]
  - HEMIPARESIS [None]
  - HYPOAESTHESIA [None]
  - NEUTROPHIL COUNT ABNORMAL [None]
  - RED BLOOD CELL COUNT DECREASED [None]
  - REHABILITATION THERAPY [None]
  - WHITE BLOOD CELL DISORDER [None]
